FAERS Safety Report 9243742 (Version 1)
Quarter: 2013Q1

REPORT INFORMATION
  Report Type: Spontaneous
  Country: US (occurrence: None)
  Receive Date: 20121123
  Receipt Date: 20121123
  Transmission Date: 20140127
  Serious: No
  Sender: FDA-Public Use
  Company Number: 358118

PATIENT
  Age: 55 Year
  Sex: Female

DRUGS (3)
  1. VICTOZA (LIRAGLUTIDE) SOLUTION FOR INJECTION, 6MG/ML [Suspect]
     Indication: TYPE 2 DIABETES MELLITUS
     Route: 058
     Dates: start: 201207
  2. LANTUS (INSULIN GLARGINE) [Concomitant]
  3. METFORMIN (METFORMIN) [Concomitant]

REACTIONS (5)
  - Myocardial infarction [None]
  - Blood glucose decreased [None]
  - Dyspepsia [None]
  - Nausea [None]
  - Constipation [None]
